FAERS Safety Report 10319530 (Version 2)
Quarter: 2014Q4

REPORT INFORMATION
  Report Type: Other
  Country: US (occurrence: US)
  Receive Date: 20140719
  Receipt Date: 20141023
  Transmission Date: 20150528
  Serious: Yes (Hospitalization)
  Sender: FDA-Public Use
  Company Number: US-GSKPPD-2014GSK003770

PATIENT
  Age: 56 Year
  Sex: Female

DRUGS (5)
  1. BUMETANIDE. [Concomitant]
     Active Substance: BUMETANIDE
  2. AVANDIA [Suspect]
     Active Substance: ROSIGLITAZONE MALEATE
     Indication: DIABETES MELLITUS
     Dosage: AVANDIA WAS NOT LISTED AMONG THE PATIENTS RECORDS REVIEWED.
     Route: 048
  3. ASPIRIN. [Concomitant]
     Active Substance: ASPIRIN
  4. VALSARTAN/HYDROCHLOROTHIAZIDE [Concomitant]
     Active Substance: HYDROCHLOROTHIAZIDE\VALSARTAN
  5. AVANDARYL [Suspect]
     Active Substance: GLIMEPIRIDE\ROSIGLITAZONE MALEATE
     Indication: DIABETES MELLITUS
     Dosage: DATES OF AVANDARYL USE COULD NOT BE CONFIRMED IN RECORDS REVIEWED.

REACTIONS (4)
  - Angina pectoris [Recovered/Resolved]
  - Coronary artery disease [Recovered/Resolved]
  - Atrial tachycardia [Recovered/Resolved]
  - Ischaemia [Unknown]

NARRATIVE: CASE EVENT DATE: 20100629
